FAERS Safety Report 6584682-4 (Version None)
Quarter: 2010Q1

REPORT INFORMATION
  Report Type: 
  Country: None (occurrence: None)
  Receive Date: 20100217
  Receipt Date: 20100204
  Transmission Date: 20100710
  Serious: Yes (Other)
  Sender: FDA-Public Use
  Company Number: PHEH2010US02086

PATIENT
  Sex: Female

DRUGS (3)
  1. ZOMETA [Suspect]
     Dosage: UNK
     Dates: start: 20060106, end: 20080401
  2. XELODA [Concomitant]
  3. POTASSIUM [Concomitant]

REACTIONS (4)
  - DENTAL OPERATION [None]
  - OSTEONECROSIS [None]
  - PAIN [None]
  - TOOTH LOSS [None]
